FAERS Safety Report 19429908 (Version 3)
Quarter: 2021Q3

REPORT INFORMATION
  Report Type: Spontaneous
  Country: US (occurrence: US)
  Receive Date: 20210617
  Receipt Date: 20210824
  Transmission Date: 20211014
  Serious: Yes (Other)
  Sender: FDA-Public Use
  Company Number: US-PFIZER INC-2021547454

PATIENT
  Age: 47 Year
  Sex: Female

DRUGS (4)
  1. XELJANZ [Suspect]
     Active Substance: TOFACITINIB CITRATE
     Indication: RHEUMATOID ARTHRITIS
     Dosage: 5 MG
     Dates: start: 20210412, end: 2021
  2. LOVENOX [Concomitant]
     Active Substance: ENOXAPARIN SODIUM
     Dosage: UNK
  3. WARFARIN [Concomitant]
     Active Substance: WARFARIN
     Dosage: UNK
  4. XELJANZ [Suspect]
     Active Substance: TOFACITINIB CITRATE
     Dosage: 5 MG
     Dates: start: 20210429, end: 20210621

REACTIONS (7)
  - Condition aggravated [Unknown]
  - Contusion [Unknown]
  - Drug ineffective [Unknown]
  - Feeling hot [Not Recovered/Not Resolved]
  - Pain in extremity [Not Recovered/Not Resolved]
  - Joint swelling [Unknown]
  - Skin lesion [Unknown]
